FAERS Safety Report 17438929 (Version 1)
Quarter: 2020Q1

REPORT INFORMATION
  Report Type: Spontaneous
  Country: FR (occurrence: FR)
  Receive Date: 20200220
  Receipt Date: 20200220
  Transmission Date: 20200409
  Serious: Yes (Other)
  Sender: FDA-Public Use
  Company Number: FR-TEVA-2020-FR-1188837

PATIENT
  Age: 69 Year
  Sex: Female
  Weight: 86 kg

DRUGS (5)
  1. PREDNISOLONE. [Suspect]
     Active Substance: PREDNISOLONE
     Dosage: 40 MG PER CYCLICAL
     Route: 048
     Dates: start: 20200103
  2. CETIRIZINE (DICHLORHYDRATE DE) [Suspect]
     Active Substance: CETIRIZINE HYDROCHLORIDE
     Dosage: 10 MG PER CYCLICAL
     Route: 048
     Dates: start: 20200103
  3. PACLITAXEL. [Suspect]
     Active Substance: PACLITAXEL
     Indication: UTERINE CANCER
     Dosage: 126 MG PER CYCLICAL
     Route: 041
     Dates: start: 20200103
  4. CIMETIDINE [Suspect]
     Active Substance: CIMETIDINE
     Dosage: 200 MG PER CYCLICAL
     Route: 048
     Dates: start: 20200103
  5. CARBOPLATINE [Suspect]
     Active Substance: CARBOPLATIN
     Indication: UTERINE CANCER
     Dosage: 230 MG PER CYCLICAL
     Route: 041
     Dates: start: 20200103

REACTIONS (3)
  - Pruritus [Recovered/Resolved]
  - Rash [Recovered/Resolved]
  - Anaphylactoid reaction [Recovered/Resolved]

NARRATIVE: CASE EVENT DATE: 20200103
